FAERS Safety Report 4689070-3 (Version None)
Quarter: 2005Q2

REPORT INFORMATION
  Report Type: 
  Country: None (occurrence: None)
  Receive Date: 20050608
  Receipt Date: 20050309
  Transmission Date: 20051028
  Serious: No
  Sender: FDA-Public Use
  Company Number: 2005-BP-03876BP

PATIENT
  Age: 82 Year
  Sex: Male

DRUGS (5)
  1. SPIRIVA [Suspect]
     Indication: CHRONIC OBSTRUCTIVE PULMONARY DISEASE
     Dosage: 18 MCG (18 MCG, QD), IH
     Route: 055
     Dates: start: 20041201
  2. LIPITOR [Concomitant]
  3. ALTACE [Concomitant]
  4. KCL (POTASSIUM CHLORIDE) [Concomitant]
  5. FUROSEMIDE [Concomitant]

REACTIONS (1)
  - AGEUSIA [None]
